FAERS Safety Report 14838047 (Version 1)
Quarter: 2018Q2

REPORT INFORMATION
  Report Type: Spontaneous
  Country: FR (occurrence: FR)
  Receive Date: 20180502
  Receipt Date: 20180502
  Transmission Date: 20180711
  Serious: Yes (Hospitalization)
  Sender: FDA-Public Use
  Company Number: FR-ASTRAZENECA-2018SE50735

PATIENT
  Age: 67 Year
  Sex: Female

DRUGS (2)
  1. LYNPARZA [Suspect]
     Active Substance: OLAPARIB
     Indication: OVARIAN CANCER
     Dosage: FOUR CAPSULES (200 MG) TWICE DAILY (FOUR CAPSULES IN THE MORNING AND FOUR CAPSULES IN THE EVENING)
     Route: 048
  2. LYNPARZA [Suspect]
     Active Substance: OLAPARIB
     Indication: OVARIAN CANCER
     Dosage: 50 AT 6 CAPSULES IN THE MORNING AND 6 CAPSULES IN THE EVENING
     Route: 048

REACTIONS (3)
  - Full blood count abnormal [Recovering/Resolving]
  - Off label use [Recovered/Resolved]
  - Fall [Unknown]
